FAERS Safety Report 7958478-2 (Version None)
Quarter: 2011Q4

REPORT INFORMATION
  Report Type: 
  Country: None (occurrence: None)
  Receive Date: 20111205
  Receipt Date: 20111129
  Transmission Date: 20120403
  Serious: Yes (Life-Threatening, Hospitalization)
  Sender: FDA-Public Use
  Company Number: DE-SANOFI-AVENTIS-2011SA078210

PATIENT
  Age: 75 Year
  Sex: Male
  Weight: 76 kg

DRUGS (8)
  1. JEVTANA KIT [Suspect]
     Route: 051
     Dates: start: 20111011, end: 20111011
  2. PREDNISOLONE [Concomitant]
     Indication: PREMEDICATION
     Route: 065
  3. JEVTANA KIT [Suspect]
     Route: 051
     Dates: start: 20111122, end: 20111122
  4. TORSEMIDE [Concomitant]
     Dosage: 10 MG AND 5 MG DAILY
     Route: 048
  5. SPIRONOLACTONE [Concomitant]
     Route: 048
  6. MARCUMAR [Concomitant]
     Dosage: DOSE ACCORDING THE QUICK VALUE
     Route: 048
  7. PANTOPRAZOLE SODIUM [Concomitant]
     Route: 048
  8. NOVALGIN [Concomitant]
     Indication: PAIN
     Route: 048

REACTIONS (5)
  - MELAENA [None]
  - GASTROINTESTINAL HAEMORRHAGE [None]
  - DIZZINESS [None]
  - NAUSEA [None]
  - ABDOMINAL PAIN [None]
